FAERS Safety Report 6913678-5 (Version None)
Quarter: 2010Q3

REPORT INFORMATION
  Report Type: 
  Country: None (occurrence: None)
  Receive Date: 20100806
  Receipt Date: 20100806
  Transmission Date: 20110219
  Serious: No
  Sender: FDA-Public Use
  Company Number: None

PATIENT
  Age: 30 Year
  Sex: Female
  Weight: 86.1834 kg

DRUGS (2)
  1. DIVALPROEX EXTENDED-RELEASE [Suspect]
     Indication: BIPOLAR I DISORDER
     Dosage: 500 MG 2 TABLETS 2 TIMES/DAY MOUTH
     Route: 048
     Dates: start: 20100315, end: 20100715
  2. DIVALPROEX EXTENDED-RELEASE [Suspect]
     Indication: PSYCHOTIC DISORDER
     Dosage: 500 MG 2 TABLETS 2 TIMES/DAY MOUTH
     Route: 048
     Dates: start: 20100315, end: 20100715

REACTIONS (1)
  - ALOPECIA [None]
